FAERS Safety Report 4836744-7 (Version None)
Quarter: 2005Q4

REPORT INFORMATION
  Report Type: 
  Country: None (occurrence: None)
  Receive Date: 20051121
  Receipt Date: 20051103
  Transmission Date: 20060501
  Serious: Yes (Hospitalization)
  Sender: FDA-Public Use
  Company Number: 200509912

PATIENT
  Age: 5 Month
  Sex: Male

DRUGS (3)
  1. ALPHAGAN [Suspect]
     Indication: GLAUCOMA
     Dosage: DROP
     Dates: start: 20050302, end: 20050302
  2. COSOPT [Concomitant]
  3. TRAVATAN [Concomitant]

REACTIONS (3)
  - DEPRESSED LEVEL OF CONSCIOUSNESS [None]
  - HYPOREFLEXIA [None]
  - LETHARGY [None]
